FAERS Safety Report 9242811 (Version 2)
Quarter: 2013Q2

REPORT INFORMATION
  Report Type: Spontaneous
  Country: CH (occurrence: CH)
  Receive Date: 20130419
  Receipt Date: 20130506
  Transmission Date: 20140414
  Serious: Yes (Hospitalization)
  Sender: FDA-Public Use
  Company Number: CH-JNJFOC-20130408765

PATIENT
  Age: 87 Year
  Sex: Female
  Weight: 63.04 kg

DRUGS (4)
  1. XARELTO [Suspect]
     Indication: CEREBROVASCULAR ACCIDENT PROPHYLAXIS
     Route: 048
     Dates: start: 20120814
  2. XARELTO [Suspect]
     Indication: ATRIAL FIBRILLATION
     Route: 048
     Dates: start: 20120814
  3. CARVEDILOL [Concomitant]
     Route: 065
  4. AMLODIPINE [Concomitant]
     Route: 065

REACTIONS (1)
  - Brain stem infarction [Recovering/Resolving]
